FAERS Safety Report 4579190-6 (Version None)
Quarter: 2005Q1

REPORT INFORMATION
  Report Type: 
  Country: None (occurrence: None)
  Receive Date: 20050208
  Receipt Date: 20050208
  Transmission Date: 20050727
  Serious: Yes (Other)
  Sender: FDA-Public Use
  Company Number: None

PATIENT
  Age: 44 Year
  Sex: Male
  Weight: 83.9154 kg

DRUGS (1)
  1. ZICAM COLD REMEDY HOMEOPATHIC NASALGEL MATRIX INT./GEL-GUMTEC [Suspect]
     Indication: NASOPHARYNGITIS
     Dosage: PUMP 1 TIME EVERY 2 TO 4 HRS NASAL
     Route: 045
     Dates: start: 20021220, end: 20021222

REACTIONS (1)
  - PAROSMIA [None]
